FAERS Safety Report 4731117-X (Version None)
Quarter: 2005Q3

REPORT INFORMATION
  Report Type: 
  Country: None (occurrence: None)
  Receive Date: 20050721
  Receipt Date: 20050505
  Transmission Date: 20060218
  Serious: No
  Sender: FDA-Public Use
  Company Number: 2005SP000590

PATIENT
  Age: 74 Year
  Sex: Female
  Weight: 66.2252 kg

DRUGS (5)
  1. LUNESTA [Suspect]
     Dosage: 2 MG;HS;ORAL. 3 MG; HS; ORAL
     Route: 048
     Dates: start: 20050101
  2. LUNESTA [Suspect]
     Dosage: 2 MG;HS;ORAL. 3 MG; HS; ORAL
     Route: 048
     Dates: start: 20050401
  3. REMERON [Concomitant]
  4. REQUIP [Concomitant]
  5. NEURONTIN [Concomitant]

REACTIONS (4)
  - BALANCE DISORDER [None]
  - DIZZINESS [None]
  - DRUG INEFFECTIVE [None]
  - INSOMNIA [None]
